FAERS Safety Report 13672994 (Version 1)
Quarter: 2017Q2

REPORT INFORMATION
  Report Type: Spontaneous
  Country: US (occurrence: US)
  Receive Date: 20170621
  Receipt Date: 20170621
  Transmission Date: 20170830
  Serious: No
  Sender: FDA-Public Use
  Company Number: None

PATIENT
  Age: 24 Year
  Sex: Male
  Weight: 90.72 kg

DRUGS (6)
  1. FISH OIL [Concomitant]
     Active Substance: FISH OIL
  2. VITAMIN B12 [Concomitant]
     Active Substance: CYANOCOBALAMIN
  3. LAMOTRIGINE. [Suspect]
     Active Substance: LAMOTRIGINE
     Indication: DEPRESSION
     Dosage: ?          QUANTITY:1 PILL;?
     Route: 048
     Dates: start: 20090301, end: 20090530
  4. VITAMIN D [Concomitant]
     Active Substance: CHOLECALCIFEROL
  5. ZINC. [Concomitant]
     Active Substance: ZINC
  6. LAMICTAL [Concomitant]
     Active Substance: LAMOTRIGINE

REACTIONS (5)
  - Pain [None]
  - Depression [None]
  - Product substitution issue [None]
  - Educational problem [None]
  - Suicidal ideation [None]

NARRATIVE: CASE EVENT DATE: 20090301
